FAERS Safety Report 21695653 (Version 1)
Quarter: 2022Q4

REPORT INFORMATION
  Report Type: Spontaneous
  Country: US (occurrence: US)
  Receive Date: 20221207
  Receipt Date: 20221207
  Transmission Date: 20230113
  Serious: No
  Sender: FDA-Public Use
  Company Number: US-MYLANLABS-2022M1124864

PATIENT

DRUGS (6)
  1. SEMGLEE (INSULIN GLARGINE-YFGN) [Suspect]
     Active Substance: INSULIN GLARGINE-YFGN
     Indication: Type 1 diabetes mellitus
     Dosage: 15 INTERNATIONAL UNIT, HS (EVERY NIGHT)
     Route: 058
     Dates: start: 20210108
  2. SEMGLEE (INSULIN GLARGINE-YFGN) [Suspect]
     Active Substance: INSULIN GLARGINE-YFGN
     Dosage: 15 INTERNATIONAL UNIT, HS (EVERY NIGHT)
     Route: 058
     Dates: start: 20210108
  3. SEMGLEE (INSULIN GLARGINE-YFGN) [Suspect]
     Active Substance: INSULIN GLARGINE-YFGN
     Dosage: 15 INTERNATIONAL UNIT, HS (EVERY NIGHT)
     Route: 058
     Dates: start: 20210108
  4. SEMGLEE (INSULIN GLARGINE-YFGN) [Suspect]
     Active Substance: INSULIN GLARGINE-YFGN
     Dosage: 15 INTERNATIONAL UNIT, HS (EVERY NIGHT)
     Route: 058
     Dates: start: 20210108
  5. SEMGLEE (INSULIN GLARGINE-YFGN) [Suspect]
     Active Substance: INSULIN GLARGINE-YFGN
     Dosage: 15 INTERNATIONAL UNIT, HS (EVERY NIGHT)
     Route: 058
     Dates: start: 20210108
  6. ADMELOG [Concomitant]
     Active Substance: INSULIN LISPRO
     Dosage: UNK
     Route: 065

REACTIONS (2)
  - Device issue [Unknown]
  - Product storage error [Unknown]
